FAERS Safety Report 7347358-1 (Version None)
Quarter: 2011Q1

REPORT INFORMATION
  Report Type: 
  Country: None (occurrence: None)
  Receive Date: 20110311
  Receipt Date: 20110302
  Transmission Date: 20110831
  Serious: Yes (Hospitalization)
  Sender: FDA-Public Use
  Company Number: US-ROCHE-763216

PATIENT
  Sex: Female

DRUGS (1)
  1. BONIVA [Suspect]
     Route: 042

REACTIONS (4)
  - INTERSTITIAL LUNG DISEASE [None]
  - DIVERTICULITIS [None]
  - COUGH [None]
  - ILL-DEFINED DISORDER [None]
